FAERS Safety Report 4319926-2 (Version None)
Quarter: 2004Q1

REPORT INFORMATION
  Report Type: 
  Country: None (occurrence: None)
  Receive Date: 20040317
  Receipt Date: 20040302
  Transmission Date: 20041129
  Serious: Yes (Hospitalization)
  Sender: FDA-Public Use
  Company Number: SUSI-2004-00118

PATIENT
  Age: 13 Year
  Sex: Female
  Weight: 50 kg

DRUGS (2)
  1. ADDERALL(AMPHETAMINE ASPARTATE, AMPHETAMINE SULFATE, DEXTROAMPHETAMINE [Suspect]
  2. ADDERALL (DEXTROAMPHETAMINE SULFATE) (DEXTROAMPHETAMINE SACCHARATE, AM [Suspect]

REACTIONS (19)
  - AGGRESSION [None]
  - AGITATION [None]
  - BLOOD PRESSURE INCREASED [None]
  - BODY TEMPERATURE DECREASED [None]
  - CARDIAC DISORDER [None]
  - CARDIAC MURMUR [None]
  - DYSPNOEA [None]
  - ELECTROCARDIOGRAM QT PROLONGED [None]
  - HEADACHE [None]
  - INTENTIONAL MISUSE [None]
  - MYOCARDIAL INFARCTION [None]
  - NAUSEA [None]
  - OVERDOSE [None]
  - PULMONARY OEDEMA [None]
  - RESPIRATORY RATE INCREASED [None]
  - SINUS TACHYCARDIA [None]
  - VENTRICULAR EXTRASYSTOLES [None]
  - VOMITING [None]
  - WHITE BLOOD CELL COUNT INCREASED [None]
